FAERS Safety Report 14123278 (Version 19)
Quarter: 2019Q2

REPORT INFORMATION
  Report Type: Report from Study
  Country: CA (occurrence: CA)
  Receive Date: 20171025
  Receipt Date: 20190614
  Transmission Date: 20190711
  Serious: Yes (Hospitalization, Other)
  Sender: FDA-Public Use
  Company Number: CA-SA-2017SA186429

PATIENT
  Age: 33 Year
  Sex: Female

DRUGS (9)
  1. ACICLOVIR [Concomitant]
     Active Substance: ACYCLOVIR
     Indication: PREMEDICATION
     Dosage: 200 MG,BID
     Route: 048
     Dates: start: 20170925, end: 20171007
  2. METHYLPREDNISOLONE. [Concomitant]
     Active Substance: METHYLPREDNISOLONE
     Indication: PREMEDICATION
     Dosage: 1 G,UNK
     Route: 042
     Dates: start: 20170925, end: 20170927
  3. PARACETAMOL [Concomitant]
     Active Substance: ACETAMINOPHEN
     Indication: PREMEDICATION
     Dosage: UNK UNK,PRN
     Route: 048
     Dates: start: 20170925
  4. BENADRYL [Concomitant]
     Active Substance: DIPHENHYDRAMINE HYDROCHLORIDE
     Indication: PREMEDICATION
     Dosage: 50 MG,UNK
     Route: 048
     Dates: start: 20170925, end: 20170927
  5. ERGOCALCIFEROL. [Concomitant]
     Active Substance: ERGOCALCIFEROL
     Indication: SUPPLEMENTATION THERAPY
     Dosage: UNK UNK,QD
     Route: 048
  6. CIMETIDINE [Concomitant]
     Active Substance: CIMETIDINE
     Indication: PREMEDICATION
     Dosage: 200 MG,UNK
     Route: 048
     Dates: start: 20170925, end: 20170927
  7. ETHINYLESTRADIOL;NORGESTREL [Concomitant]
     Dosage: UNK UNK,QD
     Route: 048
  8. GRAVOL [Concomitant]
     Active Substance: DIMENHYDRINATE
     Indication: PREMEDICATION
     Dosage: 50 MG,UNK
     Route: 048
     Dates: start: 20170925, end: 20170927
  9. ALEMTUZUMAB [Suspect]
     Active Substance: ALEMTUZUMAB
     Indication: RELAPSING-REMITTING MULTIPLE SCLEROSIS
     Dosage: 12 MG,QD
     Route: 041
     Dates: start: 20170925, end: 20170927

REACTIONS (16)
  - Hyperhidrosis [Recovered/Resolved]
  - Urine abnormality [Not Recovered/Not Resolved]
  - Urinary tract infection [Recovered/Resolved]
  - Herpes zoster [Recovering/Resolving]
  - Red blood cells urine positive [Not Recovered/Not Resolved]
  - Headache [Recovered/Resolved]
  - Urine ketone body present [Recovered/Resolved]
  - Culture urine positive [Not Recovered/Not Resolved]
  - Skin ulcer [Recovering/Resolving]
  - Mean cell haemoglobin decreased [Not Recovered/Not Resolved]
  - Chest pain [Recovering/Resolving]
  - Blood urine present [Recovered/Resolved]
  - Lymphocyte count decreased [Recovered/Resolved]
  - Nitrite urine present [Recovered/Resolved]
  - Urine leukocyte esterase positive [Recovered/Resolved]
  - Pericarditis [Recovering/Resolving]

NARRATIVE: CASE EVENT DATE: 20170926
